FAERS Safety Report 11751467 (Version 2)
Quarter: 2016Q3

REPORT INFORMATION
  Report Type: Report from Study
  Country: US (occurrence: US)
  Receive Date: 20151118
  Receipt Date: 20160921
  Transmission Date: 20161109
  Serious: Yes (Hospitalization, Other)
  Sender: FDA-Public Use
  Company Number: US-ABBVIE-15K-163-1499457-00

PATIENT
  Sex: Female

DRUGS (1)
  1. HUMIRA [Suspect]
     Active Substance: ADALIMUMAB
     Indication: CROHN^S DISEASE
     Route: 058
     Dates: end: 201608

REACTIONS (7)
  - Cholecystectomy [Recovering/Resolving]
  - Procedural complication [Unknown]
  - Crohn^s disease [Not Recovered/Not Resolved]
  - Procedural pain [Unknown]
  - Postoperative thrombosis [Not Recovered/Not Resolved]
  - Post procedural complication [Not Recovered/Not Resolved]
  - Drug ineffective [Not Recovered/Not Resolved]

NARRATIVE: CASE EVENT DATE: 2015
